FAERS Safety Report 23170124 (Version 2)
Quarter: 2023Q4

REPORT INFORMATION
  Report Type: Spontaneous
  Country: HU (occurrence: None)
  Receive Date: 20231110
  Receipt Date: 20231130
  Transmission Date: 20240109
  Serious: Yes (Death)
  Sender: FDA-Public Use
  Company Number: 2023A254578

PATIENT
  Age: 60 Year
  Sex: Female

DRUGS (1)
  1. IMFINZI [Suspect]
     Active Substance: DURVALUMAB
     Dates: start: 20230927, end: 20230927

REACTIONS (1)
  - Death [Fatal]

NARRATIVE: CASE EVENT DATE: 20231026
